FAERS Safety Report 8621396-0 (Version None)
Quarter: 2012Q3

REPORT INFORMATION
  Report Type: 
  Country: None (occurrence: None)
  Receive Date: 20120824
  Receipt Date: 20120820
  Transmission Date: 20120928
  Serious: No
  Sender: FDA-Public Use
  Company Number: US-PFIZER INC-2012204456

PATIENT

DRUGS (1)
  1. LYRICA [Suspect]
     Dosage: 225 MG, UNK
     Dates: end: 20120806

REACTIONS (1)
  - WITHDRAWAL SYNDROME [None]
